FAERS Safety Report 5035370-7 (Version None)
Quarter: 2006Q2

REPORT INFORMATION
  Report Type: 
  Country: None (occurrence: None)
  Receive Date: 20060524
  Receipt Date: 20050404
  Transmission Date: 20061013
  Serious: Yes (Other)
  Sender: FDA-Public Use
  Company Number: US-JNJFOC-20050102860

PATIENT
  Age: 52 Year
  Sex: Female
  Weight: 68.0396 kg

DRUGS (3)
  1. PROPULSID (CISAPRIDE) UNSPECIFIED [Suspect]
     Indication: DRUG USE FOR UNKNOWN INDICATION
     Dosage: 20 MG, ORAL
     Route: 048
     Dates: start: 19990823
  2. PREMARIN [Concomitant]
  3. MEDROXYPROGESTERONE [Concomitant]

REACTIONS (4)
  - MITRAL VALVE PROLAPSE [None]
  - SUPRAVENTRICULAR TACHYCARDIA [None]
  - TACHYCARDIA [None]
  - VENTRICULAR TACHYCARDIA [None]
